FAERS Safety Report 5048940-7 (Version None)
Quarter: 2006Q3

REPORT INFORMATION
  Report Type: 
  Country: None (occurrence: None)
  Receive Date: 20060712
  Receipt Date: 20050913
  Transmission Date: 20061208
  Serious: No
  Sender: FDA-Public Use
  Company Number: US-GLAXOSMITHKLINE-A0574044A

PATIENT
  Age: 46 Year
  Sex: Female

DRUGS (3)
  1. IMITREX [Suspect]
     Indication: MIGRAINE
     Dosage: 50MG AS REQUIRED
     Route: 048
     Dates: start: 19950101
  2. ACIPHEX [Concomitant]
  3. VITAMINS [Concomitant]

REACTIONS (3)
  - HEADACHE [None]
  - JOINT STIFFNESS [None]
  - RAYNAUD'S PHENOMENON [None]
